FAERS Safety Report 5917589-3 (Version None)
Quarter: 2008Q4

REPORT INFORMATION
  Report Type: 
  Country: None (occurrence: None)
  Receive Date: 20081009
  Receipt Date: 20080924
  Transmission Date: 20090506
  Serious: Yes (Life-Threatening, Hospitalization, Other)
  Sender: FDA-Public Use
  Company Number: 2008001825

PATIENT
  Age: 65 Year
  Sex: Male
  Weight: 55.1 kg

DRUGS (9)
  1. ERLOTINIB (ERLOTINIB) (TABLET) (ERLOTINIB) [Suspect]
     Indication: LUNG ADENOCARCINOMA
     Dosage: (150 MG,QD), ORAL
     Route: 048
     Dates: start: 20080428, end: 20080507
  2. NOVAMIN (PROCHLORPERAZ INE) [Concomitant]
  3. LOXONIN (LOXOPROFEN SODIUM) [Concomitant]
  4. FAMOTIDINE [Concomitant]
  5. MUCODYNE (CARBOCISTEINE) [Concomitant]
  6. OXYCONTIN [Concomitant]
  7. MAGMITT [Concomitant]
  8. PRIMPERAN TAB [Concomitant]
  9. CLONAZEPAM [Concomitant]

REACTIONS (8)
  - CONDITION AGGRAVATED [None]
  - DEHYDRATION [None]
  - DELIRIUM [None]
  - DISEASE PROGRESSION [None]
  - GENERAL PHYSICAL HEALTH DETERIORATION [None]
  - PNEUMONIA BACTERIAL [None]
  - PYREXIA [None]
  - RENAL IMPAIRMENT [None]
